FAERS Safety Report 24942134 (Version 1)
Quarter: 2025Q1

REPORT INFORMATION
  Report Type: Spontaneous
  Country: KR (occurrence: KR)
  Receive Date: 20250207
  Receipt Date: 20250207
  Transmission Date: 20250409
  Serious: Yes (Death)
  Sender: ASTELLAS
  Company Number: KR-GILEAD-2025-0702526

PATIENT
  Sex: Female

DRUGS (1)
  1. AMBISOME [Suspect]
     Active Substance: AMPHOTERICIN B
     Indication: Bacteraemia
     Dosage: 270 MG, QD
     Route: 065
     Dates: start: 20221130, end: 20221201

REACTIONS (1)
  - Blood creatinine increased [Fatal]

NARRATIVE: CASE EVENT DATE: 20221201
